FAERS Safety Report 8897455 (Version 1)
Quarter: 2012Q4

REPORT INFORMATION
  Report Type: 
  Country: US (occurrence: US)
  Receive Date: 20121108
  Receipt Date: 20121108
  Transmission Date: 20130627
  Serious: No
  Sender: FDA-Public Use
  Company Number: US-AMGEN-USASP2012012112

PATIENT
  Age: 60 Year
  Sex: Male

DRUGS (6)
  1. ENBREL [Suspect]
     Indication: PSORIASIS
     Dosage: 50 mg, qwk
     Route: 058
  2. NORVASC [Concomitant]
     Dosage: 5 mg, UNK
  3. TRIAMCINOLON                       /00031901/ [Concomitant]
  4. LEVOTHYROXIN [Concomitant]
     Dosage: 25 mug, UNK
  5. DOXYCYCLINE MONOHYDRATE [Concomitant]
     Dosage: 100 mg, UNK
  6. LEXAPRO [Concomitant]
     Dosage: 5 mg, UNK

REACTIONS (1)
  - Anxiety [Unknown]
